FAERS Safety Report 23371442 (Version 2)
Quarter: 2024Q1

REPORT INFORMATION
  Report Type: Report from Study
  Country: CL (occurrence: CL)
  Receive Date: 20240105
  Receipt Date: 20240131
  Transmission Date: 20240409
  Serious: Yes (Other)
  Sender: FDA-Public Use
  Company Number: CL-002147023-NVSC2023CL201874

PATIENT
  Age: 44 Year
  Sex: Male

DRUGS (3)
  1. TASIGNA [Suspect]
     Active Substance: NILOTINIB
     Indication: Chronic myeloid leukaemia
     Dosage: 2 DOSAGE FORM, Q12H (2 TABLETS, EVERY 12 HOURS FOR A TOTAL OF 800 MG)
     Route: 048
     Dates: end: 20231215
  2. TASIGNA [Suspect]
     Active Substance: NILOTINIB
     Dosage: 400 MG, BID
     Route: 048
  3. DASATINIB [Suspect]
     Active Substance: DASATINIB
     Indication: Chronic myeloid leukaemia
     Dosage: UNK
     Route: 065

REACTIONS (5)
  - Immunodeficiency [Unknown]
  - White blood cell count decreased [Unknown]
  - Dizziness [Unknown]
  - Pain [Unknown]
  - Incorrect dose administered [Unknown]
